FAERS Safety Report 5480116-1 (Version None)
Quarter: 2007Q4

REPORT INFORMATION
  Report Type: 
  Country: None (occurrence: None)
  Receive Date: 20071009
  Receipt Date: 20070928
  Transmission Date: 20080405
  Serious: Yes (Other)
  Sender: FDA-Public Use
  Company Number: PHBS2007ES14640

PATIENT
  Age: 27 Year
  Sex: Male

DRUGS (2)
  1. CLOZAPINE [Suspect]
     Indication: SCHIZOPHRENIA
     Dosage: UP TO 600 MG/D
  2. ARIPIPRAZOLE [Concomitant]
     Dosage: 30 MG/D

REACTIONS (6)
  - AFFECTIVE DISORDER [None]
  - ANHEDONIA [None]
  - APATHY [None]
  - BLUNTED AFFECT [None]
  - SOCIAL AVOIDANT BEHAVIOUR [None]
  - SPEECH DISORDER [None]
